FAERS Safety Report 4647444-0 (Version None)
Quarter: 2005Q2

REPORT INFORMATION
  Report Type: 
  Country: None (occurrence: None)
  Receive Date: 20050428
  Receipt Date: 20050420
  Transmission Date: 20051028
  Serious: Yes (Hospitalization)
  Sender: FDA-Public Use
  Company Number: US-JNJFOC-20050405459

PATIENT
  Sex: Female

DRUGS (6)
  1. DURAGESIC [Suspect]
     Route: 062
     Dates: start: 20020101
  2. DURAGESIC [Suspect]
     Route: 062
     Dates: start: 20020101
  3. OXYCONTIN [Concomitant]
     Dosage: 10/500 MG, AS NEEDED, ORAL
     Route: 049
     Dates: start: 20020101
  4. AMBIEN [Concomitant]
     Indication: INSOMNIA
     Route: 049
     Dates: start: 20020101
  5. IMITREX [Concomitant]
     Indication: MIGRAINE
     Route: 049
     Dates: start: 19950101
  6. ZOLOFT [Concomitant]
     Indication: DEPRESSION
     Dosage: ONCE DAILY
     Route: 049
     Dates: start: 20020101

REACTIONS (2)
  - SURGERY [None]
  - THERAPEUTIC RESPONSE DECREASED [None]
